FAERS Safety Report 12934241 (Version 1)
Quarter: 2016Q4

REPORT INFORMATION
  Report Type: Spontaneous
  Country: US (occurrence: US)
  Receive Date: 20161111
  Receipt Date: 20161111
  Transmission Date: 20170207
  Serious: No
  Sender: FDA-Public Use
  Company Number: US-009507513-1611USA003548

PATIENT
  Age: 54 Year
  Sex: Male

DRUGS (2)
  1. JANUVIA [Suspect]
     Active Substance: SITAGLIPTIN PHOSPHATE
     Indication: DIABETES MELLITUS
     Dosage: UNK
     Route: 048
     Dates: start: 2014, end: 201610
  2. JANUVIA [Suspect]
     Active Substance: SITAGLIPTIN PHOSPHATE
     Indication: DIABETES MELLITUS
     Dosage: UNK
     Route: 048
     Dates: start: 20161004, end: 201610

REACTIONS (4)
  - Insomnia [Recovered/Resolved]
  - Panic attack [Recovered/Resolved]
  - Night sweats [Recovered/Resolved]
  - Nocturnal fear [Recovered/Resolved]

NARRATIVE: CASE EVENT DATE: 201610
